FAERS Safety Report 10049698 (Version 2)
Quarter: 2014Q2

REPORT INFORMATION
  Report Type: Report from Study
  Country: ES (occurrence: ES)
  Receive Date: 20140401
  Receipt Date: 20140408
  Transmission Date: 20141212
  Serious: Yes (Death, Other)
  Sender: FDA-Public Use
  Company Number: ES-MILLENNIUM PHARMACEUTICALS, INC.-2014JNJ001074

PATIENT
  Sex: 0

DRUGS (12)
  1. VELCADE [Suspect]
     Indication: PLASMA CELL MYELOMA
     Dosage: 1.6 MG, UNK
     Route: 042
     Dates: start: 20120618, end: 20131230
  2. REVLIMID [Suspect]
     Indication: PLASMA CELL MYELOMA
     Dosage: 15 MG, UNK
     Route: 048
     Dates: start: 20120730, end: 20140223
  3. DEXAMETHASONE [Suspect]
     Indication: PLASMA CELL MYELOMA
     Dosage: 40 MG, UNK
     Route: 048
     Dates: start: 20120730, end: 20140224
  4. PREDNISONE [Suspect]
     Indication: PLASMA CELL MYELOMA
     Dosage: 100 MG, UNK
     Route: 048
     Dates: start: 20120618, end: 20131215
  5. MELPHALAN [Suspect]
     Indication: PLASMA CELL MYELOMA
     Dosage: 7 MG, UNK
     Route: 048
     Dates: start: 20120618, end: 20131215
  6. HEPARIN [Concomitant]
  7. ESCITALOPRAM [Concomitant]
  8. FUROSEMIDE [Concomitant]
  9. AMLODIPIN                          /00972401/ [Concomitant]
  10. BISOPROLOL [Concomitant]
  11. LEVOTHYROXINE [Concomitant]
  12. LORAZEPAM [Concomitant]

REACTIONS (2)
  - Acute myocardial infarction [Fatal]
  - Sudden death [Fatal]
